FAERS Safety Report 5263219-6 (Version None)
Quarter: 2007Q1

REPORT INFORMATION
  Report Type: 
  Country: None (occurrence: None)
  Receive Date: 20061219
  Receipt Date: 20061103
  Transmission Date: 20070707
  Serious: No
  Sender: FDA-Public Use
  Company Number: 2006US002489

PATIENT
  Age: 76 Year
  Sex: Male

DRUGS (6)
  1. VESICARE [Suspect]
     Indication: HYPERTONIC BLADDER
     Dosage: 5 MG, UID/QD, ORAL
     Route: 048
     Dates: start: 20061001, end: 20061001
  2. PRAVACHOL [Concomitant]
  3. TOPROL-XL [Concomitant]
  4. INSPRA [Concomitant]
  5. ENALAPRIL MALEATE [Concomitant]
  6. XANAX [Concomitant]

REACTIONS (1)
  - DYSURIA [None]
